FAERS Safety Report 25230400 (Version 2)
Quarter: 2025Q2

REPORT INFORMATION
  Report Type: Spontaneous
  Country: US (occurrence: US)
  Receive Date: 20250423
  Receipt Date: 20250430
  Transmission Date: 20250717
  Serious: No
  Sender: ROCHE
  Company Number: US-ROCHE-10000259671

PATIENT
  Age: 39 Year
  Sex: Female

DRUGS (2)
  1. XOLAIR PFS [Suspect]
     Active Substance: OMALIZUMAB
     Indication: Chronic spontaneous urticaria
     Route: 058
     Dates: start: 202207
  2. XOLAIR PFS [Suspect]
     Active Substance: OMALIZUMAB

REACTIONS (5)
  - Device physical property issue [Unknown]
  - Syringe issue [Unknown]
  - Device issue [Unknown]
  - Product preparation error [Unknown]
  - No adverse event [Unknown]
